FAERS Safety Report 6992638-2 (Version None)
Quarter: 2010Q3

REPORT INFORMATION
  Report Type: 
  Country: None (occurrence: None)
  Receive Date: 20100917
  Receipt Date: 20100908
  Transmission Date: 20110219
  Serious: Yes (Hospitalization)
  Sender: FDA-Public Use
  Company Number: FR-ASTRAZENECA-2010SE42678

PATIENT
  Age: 21393 Day
  Sex: Female

DRUGS (18)
  1. MARCAINE [Suspect]
     Indication: NERVE BLOCK
     Route: 037
     Dates: start: 20090422, end: 20090422
  2. MARCAINE [Suspect]
     Route: 037
     Dates: start: 20100319, end: 20100319
  3. LOVENOX [Suspect]
     Indication: THROMBOSIS PROPHYLAXIS
     Route: 058
     Dates: start: 20090422, end: 20090422
  4. LOVENOX [Suspect]
     Route: 058
     Dates: start: 20100319, end: 20100319
  5. DIPRIVAN [Concomitant]
  6. ISOFLURANE [Concomitant]
     Indication: ANAESTHESIA
     Route: 055
  7. ACETAMINOPHEN W/ PROPOXYPHENE HCL [Concomitant]
     Indication: PAIN
     Route: 048
  8. OSTROGEL [Concomitant]
  9. UTROGESTAN [Concomitant]
  10. MENOPHYTEA [Concomitant]
  11. XANAX [Concomitant]
  12. HYPNOVEL [Concomitant]
  13. ATROPINE [Concomitant]
  14. SUFENTA PRESERVATIVE FREE [Concomitant]
  15. EPHEDRINE [Concomitant]
  16. CEFAZOLIN [Concomitant]
  17. ACETAMINOPHEN [Concomitant]
     Route: 042
  18. ACUPAN [Concomitant]

REACTIONS (2)
  - HEPATIC ENZYME INCREASED [None]
  - HEPATITIS ACUTE [None]
